FAERS Safety Report 17572186 (Version 3)
Quarter: 2020Q2

REPORT INFORMATION
  Report Type: Spontaneous
  Country: CZ (occurrence: CZ)
  Receive Date: 20200323
  Receipt Date: 20200626
  Transmission Date: 20200713
  Serious: Yes (Life-Threatening, Hospitalization, Other)
  Sender: FDA-Public Use
  Company Number: CZ-MYLANLABS-2020M1029069

PATIENT
  Age: 74 Year
  Sex: Female

DRUGS (5)
  1. DIGOXIN. [Interacting]
     Active Substance: DIGOXIN
     Dosage: UNK
     Route: 065
     Dates: start: 2017
  2. VERAPAMIL [Suspect]
     Active Substance: VERAPAMIL HYDROCHLORIDE
     Indication: ATRIAL FIBRILLATION
     Dosage: UNK
     Route: 065
     Dates: start: 2017
  3. ACETYLSALICYLIC ACID [Concomitant]
     Active Substance: ASPIRIN
     Indication: ANTICOAGULANT THERAPY
     Dosage: UNK
     Route: 065
  4. DIGOXIN. [Interacting]
     Active Substance: DIGOXIN
     Indication: ATRIAL FIBRILLATION
     Dosage: UNK
     Route: 065
     Dates: start: 2017, end: 201906
  5. LEVOTHYROXINE. [Concomitant]
     Active Substance: LEVOTHYROXINE
     Indication: PRODUCT USED FOR UNKNOWN INDICATION
     Dosage: UNK
     Route: 065

REACTIONS (26)
  - Overdose [Unknown]
  - Chest pain [Recovered/Resolved]
  - Renal failure [Recovering/Resolving]
  - Bradycardia [Recovered/Resolved]
  - Toxicity to various agents [Recovered/Resolved]
  - Anuria [Not Recovered/Not Resolved]
  - Urinary tract infection [Unknown]
  - Blood creatinine increased [Unknown]
  - Drug interaction [Unknown]
  - Hypothyroidism [Unknown]
  - Presyncope [Unknown]
  - Blood urine present [Unknown]
  - Labelled drug-drug interaction medication error [Unknown]
  - Poor peripheral circulation [Recovered/Resolved]
  - Haemorrhoids [Unknown]
  - Dehydration [Recovered/Resolved]
  - Aortic stenosis [Unknown]
  - Nausea [Recovered/Resolved]
  - Decreased appetite [Recovered/Resolved]
  - Vertigo [Unknown]
  - Acute kidney injury [Recovered/Resolved]
  - Chest discomfort [Recovered/Resolved]
  - Epigastric discomfort [Recovered/Resolved]
  - Blood urea increased [Unknown]
  - Drug level increased [Recovering/Resolving]
  - Dilatation atrial [Unknown]

NARRATIVE: CASE EVENT DATE: 2019
